FAERS Safety Report 7771493-7 (Version None)
Quarter: 2011Q3

REPORT INFORMATION
  Report Type: 
  Country: None (occurrence: None)
  Receive Date: 20110922
  Receipt Date: 20110502
  Transmission Date: 20111222
  Serious: No
  Sender: FDA-Public Use
  Company Number: US-ASTRAZENECA-2011SE25384

PATIENT
  Age: 95 Year
  Sex: Female

DRUGS (3)
  1. DONEPEZIL HCL [Suspect]
     Route: 065
  2. SEROQUEL [Suspect]
     Route: 048
  3. POTASSIUM CHLORIDE [Suspect]
     Route: 065

REACTIONS (2)
  - ASTHENIA [None]
  - WRONG TECHNIQUE IN DRUG USAGE PROCESS [None]
